FAERS Safety Report 10095524 (Version 1)
Quarter: 2014Q2

REPORT INFORMATION
  Report Type: Spontaneous
  Country: RS (occurrence: RS)
  Receive Date: 20140422
  Receipt Date: 20140422
  Transmission Date: 20141212
  Serious: Yes (Other)
  Sender: FDA-Public Use
  Company Number: RS-ACTAVIS-2014-07684

PATIENT
  Age: 72 Year
  Sex: Female

DRUGS (4)
  1. VICTANYL [Suspect]
     Indication: PAIN
     Dosage: 50 UNK, UNK
     Route: 062
  2. VICTANYL [Suspect]
     Indication: CERVICOBRACHIAL SYNDROME
  3. VICTANYL [Suspect]
     Indication: BACK PAIN
  4. VICTANYL [Suspect]
     Indication: CERVICAL RADICULOPATHY

REACTIONS (4)
  - Hypersensitivity [Recovered/Resolved]
  - Choking [Recovered/Resolved]
  - Erythema [Recovered/Resolved]
  - Tinnitus [Recovered/Resolved]
